FAERS Safety Report 4907386-X (Version None)
Quarter: 2006Q1

REPORT INFORMATION
  Report Type: 
  Country: None (occurrence: None)
  Receive Date: 20060208
  Receipt Date: 20060208
  Transmission Date: 20060701
  Serious: Yes (Hospitalization)
  Sender: FDA-Public Use
  Company Number: None

PATIENT
  Age: 86 Year
  Sex: Male

DRUGS (17)
  1. TRAMADOL [Suspect]
     Indication: PAIN IN EXTREMITY
     Dosage: 50 MG PO Q4H PRN
     Route: 048
     Dates: start: 20051104, end: 20051214
  2. PENTOXIFYLLINE [Suspect]
     Dosage: 400 MG PO TID
     Route: 048
     Dates: start: 20050930, end: 20051214
  3. ACETAMINOPHEN [Concomitant]
  4. ALBUTEROL SULFATE AND IPRATROPIUM BROMIDE [Concomitant]
  5. AMITRIPTYLINE HCL [Concomitant]
  6. ASPIRIN [Concomitant]
  7. CAPSAICIN [Concomitant]
  8. DOCUSATE NA [Concomitant]
  9. ENALAPRIL MALEATE [Concomitant]
  10. FELODIPINE [Concomitant]
  11. FLUCONAZOLE [Concomitant]
  12. FUROSEMIDE [Concomitant]
  13. INSULIN NOVOLIN 70/30-NPH/REG [Concomitant]
  14. NITROGLYCERIN [Concomitant]
  15. OMEPRAZOLE [Concomitant]
  16. PENTOXIFYLLINE [Concomitant]
  17. SIMVASTATIN [Concomitant]

REACTIONS (8)
  - AGGRESSION [None]
  - AGITATION [None]
  - BLOOD CREATINE PHOSPHOKINASE INCREASED [None]
  - CONFUSIONAL STATE [None]
  - FALL [None]
  - HALLUCINATION [None]
  - RENAL FAILURE ACUTE [None]
  - TREMOR [None]
